FAERS Safety Report 8775423 (Version 3)
Quarter: 2012Q4

REPORT INFORMATION
  Report Type: 
  Country: IT (occurrence: IT)
  Receive Date: 20120909
  Receipt Date: 20121029
  Transmission Date: 20130627
  Serious: Yes (Hospitalization, Other)
  Sender: FDA-Public Use
  Company Number: IT-ABBOTT-12P-083-0973980-00

PATIENT
  Age: 47 Year
  Sex: Female

DRUGS (3)
  1. TIARTAN [Suspect]
     Route: 048
     Dates: start: 20120815
  2. MODURETIC [Suspect]
     Indication: HYPERTENSION
     Route: 048
     Dates: start: 20120815, end: 20120815
  3. AULIN [Concomitant]
     Indication: DYSMENORRHOEA
     Dates: start: 20120815, end: 20120815

REACTIONS (4)
  - Syncope [Recovered/Resolved]
  - Blood pressure decreased [Unknown]
  - Loss of consciousness [Unknown]
  - Malaise [Unknown]
